FAERS Safety Report 4453876-6 (Version None)
Quarter: 2004Q3

REPORT INFORMATION
  Report Type: 
  Country: None (occurrence: None)
  Receive Date: 20040920
  Receipt Date: 20040914
  Transmission Date: 20050211
  Serious: Yes (Hospitalization)
  Sender: FDA-Public Use
  Company Number: US-MERCK-0409USA01262

PATIENT
  Age: 54 Year
  Sex: Male

DRUGS (1)
  1. VIOXX [Suspect]
     Indication: OSTEOARTHRITIS
     Route: 048

REACTIONS (4)
  - BLOOD PRESSURE INCREASED [None]
  - CARDIAC DISORDER [None]
  - DYSPEPSIA [None]
  - NEPHROLITHIASIS [None]
